FAERS Safety Report 4438790-4 (Version None)
Quarter: 2004Q3

REPORT INFORMATION
  Report Type: 
  Country: None (occurrence: None)
  Receive Date: 20040901
  Receipt Date: 20040824
  Transmission Date: 20050211
  Serious: Yes (Hospitalization)
  Sender: FDA-Public Use
  Company Number: IT-JNJFOC-20040806981

PATIENT
  Sex: Female

DRUGS (35)
  1. BLINDED; INFLIXIMAB, RECOMBINANT [Suspect]
     Route: 042
  2. BLINDED; INFLIXIMAB, RECOMBINANT [Suspect]
     Route: 042
  3. BLINDED; INFLIXIMAB, RECOMBINANT [Suspect]
     Route: 042
  4. BLINDED; INFLIXIMAB, RECOMBINANT [Suspect]
     Route: 042
  5. BLINDED; INFLIXIMAB, RECOMBINANT [Suspect]
     Indication: CACHEXIA
     Route: 042
  6. PLACEBO [Suspect]
     Route: 042
  7. PLACEBO [Suspect]
     Route: 042
  8. PLACEBO [Suspect]
     Route: 042
  9. PLACEBO [Suspect]
     Route: 042
  10. PLACEBO [Suspect]
     Indication: CACHEXIA
     Route: 042
  11. GEMCITABINE [Concomitant]
     Route: 042
  12. SKENAN [Concomitant]
     Route: 049
  13. SKENAN [Concomitant]
     Route: 049
  14. MOTILEX [Concomitant]
     Route: 049
  15. MOTILEX [Concomitant]
     Route: 049
  16. MOTILEX [Concomitant]
     Route: 049
  17. MYELOSTIM [Concomitant]
     Route: 058
  18. MYELOSTIM [Concomitant]
     Route: 058
  19. MYCOSTATIN [Concomitant]
     Route: 049
  20. MYCOSTATIN [Concomitant]
     Route: 049
  21. DECADRON [Concomitant]
  22. TATIONIL [Concomitant]
     Route: 042
  23. TATIONIL [Concomitant]
     Route: 042
  24. PLASIL [Concomitant]
     Route: 049
  25. PLASIL [Concomitant]
     Route: 049
  26. PLASIL [Concomitant]
     Route: 049
  27. GRANULOKINE [Concomitant]
     Route: 058
  28. DECADRON [Concomitant]
     Route: 042
  29. DURAGESIC [Concomitant]
     Route: 062
  30. TORADOL [Concomitant]
     Route: 049
  31. PORTOLAC [Concomitant]
     Route: 049
  32. LAEVOLAC [Concomitant]
     Route: 049
  33. XANAX [Concomitant]
     Route: 049
  34. KYTRIL [Concomitant]
     Route: 042
     Dates: start: 20040604, end: 20040604
  35. LASIX [Concomitant]
     Route: 042

REACTIONS (3)
  - ABDOMINAL PAIN [None]
  - NAUSEA [None]
  - VOMITING [None]
